FAERS Safety Report 17156525 (Version 1)
Quarter: 2019Q4

REPORT INFORMATION
  Report Type: Spontaneous
  Country: DK (occurrence: DK)
  Receive Date: 20191216
  Receipt Date: 20191216
  Transmission Date: 20200122
  Serious: Yes (Hospitalization)
  Sender: FDA-Public Use
  Company Number: DK-TEVA-2019-DK-1151805

PATIENT
  Age: 62 Year
  Sex: Female

DRUGS (2)
  1. IMADRAX [Concomitant]
     Active Substance: AMOXICILLIN
     Indication: LUNG CYST
     Dosage: STRENGTH: 1000 MG.
     Route: 048
     Dates: start: 20180516
  2. METRONIDAZOL ACTAVIS [Suspect]
     Active Substance: METRONIDAZOLE
     Indication: LUNG CYST
     Dosage: STRENGTH: 500 MG
     Route: 048
     Dates: start: 20180516, end: 20180613

REACTIONS (14)
  - Joint dislocation [Unknown]
  - Speech disorder [Not Recovered/Not Resolved]
  - Polyneuropathy [Not Recovered/Not Resolved]
  - Balance disorder [Not Recovered/Not Resolved]
  - Coordination abnormal [Unknown]
  - Alopecia [Not Recovered/Not Resolved]
  - Visual impairment [Not Recovered/Not Resolved]
  - Dysarthria [Not Recovered/Not Resolved]
  - Musculoskeletal pain [Unknown]
  - Fall [Unknown]
  - Memory impairment [Not Recovered/Not Resolved]
  - Ataxia [Not Recovered/Not Resolved]
  - Toxic encephalopathy [Unknown]
  - Gait disturbance [Not Recovered/Not Resolved]

NARRATIVE: CASE EVENT DATE: 20180611
